FAERS Safety Report 5268351-9 (Version None)
Quarter: 2007Q1

REPORT INFORMATION
  Report Type: 
  Country: None (occurrence: None)
  Receive Date: 20070319
  Receipt Date: 20070305
  Transmission Date: 20070707
  Serious: Yes (Other)
  Sender: FDA-Public Use
  Company Number: PHRM2007FR00967

PATIENT
  Age: 69 Year
  Sex: Female

DRUGS (1)
  1. LAMISIL [Suspect]
     Indication: NAIL TINEA
     Dosage: 250 MG, QD
     Route: 048
     Dates: start: 20070201, end: 20070304

REACTIONS (5)
  - AGEUSIA [None]
  - BACK PAIN [None]
  - CHROMATURIA [None]
  - PHARYNGOLARYNGEAL PAIN [None]
  - PYREXIA [None]
